FAERS Safety Report 13556005 (Version 1)
Quarter: 2017Q2

REPORT INFORMATION
  Report Type: Spontaneous
  Country: US (occurrence: US)
  Receive Date: 20170517
  Receipt Date: 20170517
  Transmission Date: 20170830
  Serious: No
  Sender: FDA-Public Use
  Company Number: US-SA-2016SA220108

PATIENT
  Age: 70 Year
  Sex: Female
  Weight: 77.11 kg

DRUGS (19)
  1. TOPROL XL [Concomitant]
     Active Substance: METOPROLOL SUCCINATE
  2. TOUJEO [Suspect]
     Active Substance: INSULIN GLARGINE
     Indication: TYPE 2 DIABETES MELLITUS
     Dosage: DOSE:18 UNIT(S)
     Route: 065
     Dates: start: 20161121
  3. NITROLINGUAL [Concomitant]
     Active Substance: NITROGLYCERIN
     Dosage: SPRAY
  4. VITAMIN B12 [Concomitant]
     Active Substance: CYANOCOBALAMIN
  5. HUMALOG [Concomitant]
     Active Substance: INSULIN LISPRO
  6. BUSPIRONE [Concomitant]
     Active Substance: BUSPIRONE HYDROCHLORIDE
     Dosage: DOSE: 5 MG HALF AS NEEDED
  7. VITAMIN D [Concomitant]
     Active Substance: CHOLECALCIFEROL
  8. KWIKPEN [Concomitant]
     Dosage: SLIDING SCALE: 1 UNIT PER 20 CARBS
  9. OMEPRAZOLE. [Concomitant]
     Active Substance: OMEPRAZOLE
     Dosage: FREQ: 1:00 AM
  10. LANTUS [Concomitant]
     Active Substance: INSULIN GLARGINE
  11. LATANOPROST. [Concomitant]
     Active Substance: LATANOPROST
     Dosage: DOSE: 2.5 MIL,1 DROP A DAY EACH EYE PM
  12. CALCIUM [Concomitant]
     Active Substance: CALCIUM
  13. ATORVASTATIN [Concomitant]
     Active Substance: ATORVASTATIN
  14. TIMOLOL MALEATE. [Concomitant]
     Active Substance: TIMOLOL MALEATE
     Dosage: DOSE: 10 MIL, 1 DROP A DAY EACH EYE AM
  15. SOLOSTAR [Suspect]
     Active Substance: DEVICE
     Indication: TYPE 2 DIABETES MELLITUS
     Dates: start: 20161121
  16. ATORVASTATIN [Concomitant]
     Active Substance: ATORVASTATIN
  17. ASPIRIN. [Concomitant]
     Active Substance: ASPIRIN
  18. PROAIR HFA [Concomitant]
     Active Substance: ALBUTEROL SULFATE
     Dosage: INHALATION AEROSOL
     Route: 055
  19. SYNTHROID [Concomitant]
     Active Substance: LEVOTHYROXINE SODIUM

REACTIONS (3)
  - Incorrect dose administered [Unknown]
  - Blood glucose increased [Recovered/Resolved]
  - Device issue [Unknown]

NARRATIVE: CASE EVENT DATE: 201611
